FAERS Safety Report 11615736 (Version 1)
Quarter: 2015Q4

REPORT INFORMATION
  Report Type: Spontaneous
  Country: US (occurrence: US)
  Receive Date: 20151009
  Receipt Date: 20151009
  Transmission Date: 20160304
  Serious: Yes (Hospitalization, Other)
  Sender: FDA-Public Use
  Company Number: US-ALLERGAN-1520512US

PATIENT
  Age: 82 Year
  Sex: Male

DRUGS (4)
  1. TIMOLOL MALEATE. [Suspect]
     Active Substance: TIMOLOL MALEATE
     Indication: GLAUCOMA
     Dosage: 2 GTT, BID
     Route: 047
     Dates: start: 1995
  2. REFRESH TEARS [Suspect]
     Active Substance: CARBOXYMETHYLCELLULOSE SODIUM
     Indication: DRY EYE
     Dosage: UNK
     Route: 047
  3. LUMIGAN [Suspect]
     Active Substance: BIMATOPROST
     Indication: INTRAOCULAR PRESSURE INCREASED
     Route: 047
  4. SYSTAINE EYE DROPS [Concomitant]
     Indication: DRY EYE

REACTIONS (8)
  - Laceration [Unknown]
  - Nasal dryness [Not Recovered/Not Resolved]
  - Dry throat [Not Recovered/Not Resolved]
  - Liver contusion [Unknown]
  - Gastrooesophageal reflux disease [Not Recovered/Not Resolved]
  - Retinal detachment [Recovered/Resolved]
  - Non-cardiac chest pain [Recovered/Resolved]
  - Fall [Unknown]

NARRATIVE: CASE EVENT DATE: 1995
